FAERS Safety Report 13099802 (Version 2)
Quarter: 2017Q1

REPORT INFORMATION
  Report Type: Report from Study
  Country: NL (occurrence: NL)
  Receive Date: 20170110
  Receipt Date: 20170206
  Transmission Date: 20170428
  Serious: Yes (Hospitalization, Other)
  Sender: FDA-Public Use
  Company Number: NL-AMGEN-NLDSL2017001780

PATIENT
  Age: 81 Year
  Sex: Female

DRUGS (2)
  1. ARANESP [Suspect]
     Active Substance: DARBEPOETIN ALFA
     Indication: NEPHROGENIC ANAEMIA
     Dosage: 40 MUG, Q4WK
     Route: 058
  2. ARANESP [Suspect]
     Active Substance: DARBEPOETIN ALFA
     Dosage: 80 MUG, QWK
     Route: 058

REACTIONS (3)
  - Intentional product misuse [Unknown]
  - Spondylitis [Unknown]
  - Hospitalisation [Unknown]

NARRATIVE: CASE EVENT DATE: 201701
